FAERS Safety Report 4303349-6 (Version None)
Quarter: 2004Q1

REPORT INFORMATION
  Report Type: 
  Country: None (occurrence: None)
  Receive Date: 20040223
  Receipt Date: 20040210
  Transmission Date: 20041129
  Serious: Yes (Death, Life-Threatening, Hospitalization)
  Sender: FDA-Public Use
  Company Number: AU-JNJFOC-20030903295

PATIENT
  Age: 62 Year
  Sex: Male
  Weight: 70 kg

DRUGS (10)
  1. REMINYL [Suspect]
     Indication: DEMENTIA
     Dosage: 8 MG, 2 IN 1 DAY, ORAL
     Route: 048
     Dates: start: 20011101
  2. MIRTAZAPINE [Suspect]
     Indication: DEPRESSION
     Dosage: 30 MG, 1 IN 1 DAY, ORAL
     Route: 048
     Dates: start: 20030730
  3. RISPERIDONE [Suspect]
  4. HALOPERIDOL [Suspect]
  5. VIOXX [Concomitant]
  6. LIPITOR [Concomitant]
  7. VITAMIN E [Concomitant]
  8. VITAMIN C (ASCORBIC ACID) [Concomitant]
  9. FOLIC ACID [Concomitant]
  10. GINKGO BILOBA (GINKGO BILOBA) [Concomitant]

REACTIONS (25)
  - ADENOMA BENIGN [None]
  - AGITATION [None]
  - BLOOD UREA INCREASED [None]
  - CHOLECYSTITIS [None]
  - COLLAPSE OF LUNG [None]
  - CONFUSIONAL STATE [None]
  - DELIRIUM [None]
  - DISORIENTATION [None]
  - HYPOTENSION [None]
  - HYPOXIA [None]
  - INTESTINAL HYPOMOTILITY [None]
  - KLEBSIELLA INFECTION [None]
  - LOBAR PNEUMONIA [None]
  - LOWER RESPIRATORY TRACT INFECTION [None]
  - PNEUMONIA [None]
  - PNEUMONIA ASPIRATION [None]
  - POSTOPERATIVE ILEUS [None]
  - PULMONARY EMBOLISM [None]
  - PYREXIA [None]
  - RESPIRATORY ARREST [None]
  - RESPIRATORY FAILURE [None]
  - SEPSIS [None]
  - SPUTUM CULTURE POSITIVE [None]
  - STAPHYLOCOCCAL INFECTION [None]
  - TACHYCARDIA [None]
